FAERS Safety Report 7487705-3 (Version None)
Quarter: 2011Q2

REPORT INFORMATION
  Report Type: 
  Country: None (occurrence: None)
  Receive Date: 20110511
  Receipt Date: 20110428
  Transmission Date: 20111010
  Serious: Yes (Hospitalization)
  Sender: FDA-Public Use
  Company Number: 2011CP000075

PATIENT
  Age: 67 Year
  Sex: Female

DRUGS (9)
  1. HYPNOVEL (MIDAZOLAM HCL) (NO PREF. NAME) [Suspect]
     Indication: GENERAL ANAESTHESIA
     Dosage: 2 MG; IV
     Route: 042
     Dates: start: 20110107
  2. SEVOFLURANE [Suspect]
     Indication: GENERAL ANAESTHESIA
     Dosage: INH
     Route: 055
     Dates: start: 20110107
  3. SOLU-MEDROL [Suspect]
     Indication: GENERAL ANAESTHESIA
     Dosage: 120 MG; IV
     Route: 042
     Dates: start: 20110107
  4. EFFEXOR [Concomitant]
  5. SUFENTA (SUFENTANIL CITRATE) [Suspect]
     Indication: GENERAL ANAESTHESIA
     Dosage: 20 MG; IV
     Route: 042
     Dates: start: 20110107
  6. DIPRIVAN [Suspect]
     Indication: GENERAL ANAESTHESIA
     Dosage: 260 MG; IV
     Route: 042
     Dates: start: 20110107
  7. ACETAMINOPHEN [Suspect]
     Indication: GENERAL ANAESTHESIA
     Dosage: 1 GM;IV
     Route: 042
     Dates: start: 20110107
  8. KETALAR [Suspect]
     Indication: GENERAL ANAESTHESIA
     Dosage: 30 MG; IV
     Route: 042
     Dates: start: 20110107
  9. PRAZEPAM [Concomitant]

REACTIONS (2)
  - HEPATITIS ACUTE [None]
  - HEPATOTOXICITY [None]
